FAERS Safety Report 12641070 (Version 1)
Quarter: 2016Q3

REPORT INFORMATION
  Report Type: Other
  Country: FR (occurrence: FR)
  Receive Date: 20160810
  Receipt Date: 20160810
  Transmission Date: 20161109
  Serious: Yes (Other)
  Sender: FDA-Public Use
  Company Number: FR-HQ SPECIALTY-FR-2016INT000754

PATIENT
  Age: 23 Year
  Sex: Female

DRUGS (2)
  1. METHOTREXATE SODIUM. [Suspect]
     Active Substance: METHOTREXATE SODIUM
     Indication: ANKYLOSING SPONDYLITIS
     Dosage: UNK
     Route: 065
     Dates: start: 201501, end: 2015
  2. HUMIRA [Suspect]
     Active Substance: ADALIMUMAB
     Indication: CROHN^S DISEASE
     Dosage: STRENGTH: 40 MG (1 DOSAGE FORM,1 IN 2 W)
     Route: 058
     Dates: start: 201309

REACTIONS (11)
  - Rhinitis [Recovered/Resolved]
  - Nasal crusting [Recovered/Resolved]
  - Angular cheilitis [Recovered/Resolved]
  - Anal abscess [Recovered/Resolved]
  - Folliculitis [Not Recovered/Not Resolved]
  - Psoriasis [Unknown]
  - Staphylococcal infection [Not Recovered/Not Resolved]
  - Dermatitis psoriasiform [Unknown]
  - Product use issue [Unknown]
  - Furuncle [Not Recovered/Not Resolved]
  - Bacterial disease carrier [Not Recovered/Not Resolved]

NARRATIVE: CASE EVENT DATE: 2015
